FAERS Safety Report 11654774 (Version 1)
Quarter: 2015Q4

REPORT INFORMATION
  Report Type: Spontaneous
  Country: US (occurrence: None)
  Receive Date: 20151022
  Receipt Date: 20151022
  Transmission Date: 20160304
  Serious: No
  Sender: FDA-Public Use
  Company Number: None

PATIENT
  Age: 43 Year
  Sex: Female
  Weight: 154.22 kg

DRUGS (10)
  1. TIZANIDINE. [Concomitant]
     Active Substance: TIZANIDINE
  2. TANZEUM [Suspect]
     Active Substance: ALBIGLUTIDE
     Indication: TYPE 2 DIABETES MELLITUS
     Dosage: GIVEN INTO/UNDER THE SKIN
     Dates: start: 20150810, end: 20151011
  3. NOVOLOG [Concomitant]
     Active Substance: INSULIN ASPART
  4. ESTRADIOL. [Concomitant]
     Active Substance: ESTRADIOL
  5. ZYRTEC [Concomitant]
     Active Substance: CETIRIZINE HYDROCHLORIDE
  6. METFORMIN [Concomitant]
     Active Substance: METFORMIN HYDROCHLORIDE
  7. GEMFIBROZIL. [Concomitant]
     Active Substance: GEMFIBROZIL
  8. LEVEMIR [Concomitant]
     Active Substance: INSULIN DETEMIR
  9. PAXIL CR [Concomitant]
     Active Substance: PAROXETINE HYDROCHLORIDE
  10. CLONAZEPAM. [Concomitant]
     Active Substance: CLONAZEPAM

REACTIONS (4)
  - Abdominal pain upper [None]
  - Unevaluable event [None]
  - Flank pain [None]
  - Dyspepsia [None]

NARRATIVE: CASE EVENT DATE: 20151011
